FAERS Safety Report 6172578-1 (Version None)
Quarter: 2009Q2

REPORT INFORMATION
  Report Type: 
  Country: None (occurrence: None)
  Receive Date: 20090428
  Receipt Date: 20090415
  Transmission Date: 20091009
  Serious: Yes (Other)
  Sender: FDA-Public Use
  Company Number: 2009003941

PATIENT
  Age: 45 Year
  Sex: Male
  Weight: 58.9676 kg

DRUGS (5)
  1. ACTIQ [Suspect]
     Indication: PAIN
     Dosage: (400 MCG),BU
     Route: 002
     Dates: start: 20040101, end: 20070101
  2. SOMA [Concomitant]
  3. VICODIN [Concomitant]
  4. FENTANYL [Concomitant]
  5. OXYCODONE HCL [Concomitant]

REACTIONS (12)
  - DIARRHOEA [None]
  - DRUG DEPENDENCE [None]
  - DRUG WITHDRAWAL SYNDROME [None]
  - FEELING OF BODY TEMPERATURE CHANGE [None]
  - INADEQUATE ANALGESIA [None]
  - INCORRECT DOSE ADMINISTERED [None]
  - MUSCLE SPASMS [None]
  - NAUSEA [None]
  - PYREXIA [None]
  - SELF-MEDICATION [None]
  - THERAPY CESSATION [None]
  - VOMITING [None]
